FAERS Safety Report 5061829-2 (Version None)
Quarter: 2006Q3

REPORT INFORMATION
  Report Type: 
  Country: None (occurrence: None)
  Receive Date: 20060703
  Receipt Date: 20060131
  Transmission Date: 20061208
  Serious: No
  Sender: FDA-Public Use
  Company Number: 2006S1001003

PATIENT
  Age: 57 Year
  Sex: Female
  Weight: 59.1944 kg

DRUGS (9)
  1. CLOZAPINE [Suspect]
     Indication: PSYCHOTIC DISORDER
     Dosage: SEE IMAGE
     Route: 048
     Dates: start: 20040901, end: 20060105
  2. CLOZAPINE [Suspect]
     Indication: PSYCHOTIC DISORDER
     Dosage: SEE IMAGE
     Route: 048
     Dates: start: 20040901, end: 20060105
  3. CLOZAPINE [Suspect]
     Indication: PSYCHOTIC DISORDER
     Dosage: SEE IMAGE
     Route: 048
     Dates: start: 20060106
  4. FERROUS SULFATE TAB [Concomitant]
  5. METOCLOPRAMIDE [Concomitant]
  6. HYDROCHLORIDE [Concomitant]
  7. PANTOPRAZOLE SODIUM [Concomitant]
  8. DULOXETINE [Concomitant]
  9. VITAMINS NOS [Concomitant]

REACTIONS (1)
  - GRANULOCYTOPENIA [None]
